FAERS Safety Report 21479258 (Version 1)
Quarter: 2022Q4

REPORT INFORMATION
  Report Type: Spontaneous
  Country: US (occurrence: None)
  Receive Date: 20221018
  Receipt Date: 20221018
  Transmission Date: 20230113
  Serious: Yes (Hospitalization)
  Sender: FDA-Public Use
  Company Number: None

PATIENT
  Age: 87 Year
  Sex: Male

DRUGS (23)
  1. ADEMPAS [Suspect]
     Active Substance: RIOCIGUAT
     Indication: Pulmonary hypertension
     Dosage: FREQUENCY : 3 TIMES A DAY;?
     Route: 048
     Dates: start: 20181231
  2. SPIRIVA RESPIMAT [Concomitant]
     Active Substance: TIOTROPIUM BROMIDE
  3. POTASSIUM CHLORIDE [Concomitant]
     Active Substance: POTASSIUM CHLORIDE
  4. METOPROLOL [Concomitant]
     Active Substance: METOPROLOL
  5. FUROSEMIDE [Concomitant]
     Active Substance: FUROSEMIDE
  6. WARFARIN [Concomitant]
     Active Substance: WARFARIN
  7. CULTURELLE [Concomitant]
     Active Substance: LACTOBACILLUS RHAMNOSUS
  8. COLCHICINE [Concomitant]
     Active Substance: COLCHICINE
  9. xaltan opht drop [Concomitant]
  10. ALLOPURINOL [Concomitant]
     Active Substance: ALLOPURINOL
  11. ALBUTEROL SULFATE [Concomitant]
     Active Substance: ALBUTEROL SULFATE
  12. OXYBUTYNIN [Concomitant]
     Active Substance: OXYBUTYNIN
  13. PREDNISONE [Concomitant]
     Active Substance: PREDNISONE
  14. WIXELA INHUB [Concomitant]
     Active Substance: FLUTICASONE PROPIONATE\SALMETEROL XINAFOATE
  15. trusop opht drop [Concomitant]
  16. HIPREX [Concomitant]
     Active Substance: METHENAMINE HIPPURATE
  17. alphagan opht drop [Concomitant]
  18. diclofenac top gel [Concomitant]
  19. MONTELUKAST [Concomitant]
     Active Substance: MONTELUKAST SODIUM
  20. MAGNESIUM OXIDE [Concomitant]
     Active Substance: MAGNESIUM OXIDE
  21. FERROUS SULFATE [Concomitant]
     Active Substance: FERROUS SULFATE
  22. ASCORBIC ACID [Concomitant]
     Active Substance: ASCORBIC ACID
  23. CALCIUM CARBONATE [Concomitant]
     Active Substance: CALCIUM CARBONATE

REACTIONS (5)
  - Cor pulmonale [None]
  - Chronic left ventricular failure [None]
  - Cardiac failure congestive [None]
  - Urinary tract infection bacterial [None]
  - Culture urine positive [None]

NARRATIVE: CASE EVENT DATE: 20220920
